FAERS Safety Report 9349571 (Version 1)
Quarter: 2013Q2

REPORT INFORMATION
  Report Type: Spontaneous
  Country: CN (occurrence: CN)
  Receive Date: 20130614
  Receipt Date: 20130614
  Transmission Date: 20140414
  Serious: Yes (Hospitalization, Other)
  Sender: FDA-Public Use
  Company Number: CN-GLAXOSMITHKLINE-B0899425A

PATIENT
  Age: 50 Year
  Sex: Male
  Weight: 65 kg

DRUGS (2)
  1. SEROXAT [Suspect]
     Indication: ANXIETY
     Dosage: .5MG IN THE MORNING
     Route: 048
     Dates: start: 20120106, end: 20120111
  2. LORAZEPAM [Concomitant]
     Dosage: .5MG AT NIGHT

REACTIONS (5)
  - Dyspnoea [Recovering/Resolving]
  - Palpitations [Recovering/Resolving]
  - Lethargy [Recovering/Resolving]
  - Chest discomfort [Recovering/Resolving]
  - Muscle spasms [Recovering/Resolving]
